FAERS Safety Report 5855884-7 (Version None)
Quarter: 2008Q3

REPORT INFORMATION
  Report Type: 
  Country: None (occurrence: None)
  Receive Date: 20080821
  Receipt Date: 20080817
  Transmission Date: 20090109
  Serious: Yes (Other)
  Sender: FDA-Public Use
  Company Number: 2008SP016660

PATIENT
  Age: 53 Year
  Sex: Female

DRUGS (2)
  1. PEG-INTRON [Suspect]
     Indication: HEPATITIS C
     Dosage: ; SC
     Route: 058
     Dates: start: 20080725
  2. RIBAVIRIN [Suspect]
     Indication: HEPATITIS C
     Dosage: ; PO
     Route: 048
     Dates: start: 20080725

REACTIONS (8)
  - ABDOMINAL DISTENSION [None]
  - DECREASED APPETITE [None]
  - FATIGUE [None]
  - HAEMATEMESIS [None]
  - HYPERHIDROSIS [None]
  - NAUSEA [None]
  - PAIN [None]
  - VOMITING [None]
